FAERS Safety Report 15352336 (Version 1)
Quarter: 2018Q4

REPORT INFORMATION
  Report Type: Spontaneous
  Country: GB (occurrence: GB)
  Receive Date: 20180905
  Receipt Date: 20180905
  Transmission Date: 20190204
  Serious: Yes (Other)
  Sender: FDA-Public Use
  Company Number: GB-TERSERA THERAPEUTICS LLC-TSR2018002002

PATIENT

DRUGS (1)
  1. ZOLADEX [Suspect]
     Active Substance: GOSERELIN ACETATE
     Indication: ENDOMETRIOSIS
     Dosage: 3.6 MG; EVERY 28 DAYS
     Route: 058
     Dates: start: 20161028

REACTIONS (12)
  - Drug ineffective [Not Recovered/Not Resolved]
  - Breast pain [Unknown]
  - Suicidal ideation [Not Recovered/Not Resolved]
  - Loss of personal independence in daily activities [Unknown]
  - Stress [Not Recovered/Not Resolved]
  - Mental disorder [Unknown]
  - Breast enlargement [Not Recovered/Not Resolved]
  - Weight increased [Not Recovered/Not Resolved]
  - Anxiety [Not Recovered/Not Resolved]
  - Emotional distress [Not Recovered/Not Resolved]
  - Depression [Not Recovered/Not Resolved]
  - Kyphosis [Not Recovered/Not Resolved]
